FAERS Safety Report 8408343-1 (Version None)
Quarter: 2012Q2

REPORT INFORMATION
  Report Type: 
  Country: None (occurrence: None)
  Receive Date: 20120531
  Receipt Date: 20120531
  Transmission Date: 20120825
  Serious: Yes (Other)
  Sender: FDA-Public Use
  Company Number: None

PATIENT
  Age: 74 Year
  Sex: Female
  Weight: 51.2565 kg

DRUGS (2)
  1. ATROVENT HFA [Suspect]
     Indication: ASTHMA
     Dosage: 2 PUFFS 4 X DAY MOUTH
     Route: 048
     Dates: start: 20120104
  2. ATROVENT HFA [Suspect]
     Indication: BRONCHITIS
     Dosage: 2 PUFFS 4 X DAY MOUTH
     Route: 048
     Dates: start: 20120104

REACTIONS (7)
  - DIZZINESS [None]
  - EYE DISORDER [None]
  - DISORIENTATION [None]
  - VISION BLURRED [None]
  - CHOKING [None]
  - UNEVALUABLE EVENT [None]
  - SPEECH DISORDER [None]
